FAERS Safety Report 19108723 (Version 2)
Quarter: 2021Q2

REPORT INFORMATION
  Report Type: Spontaneous
  Country: US (occurrence: US)
  Receive Date: 20210408
  Receipt Date: 20210623
  Transmission Date: 20210717
  Serious: No
  Sender: FDA-Public Use
  Company Number: US-GLENMARK PHARMACEUTICALS-2021GMK052650

PATIENT

DRUGS (3)
  1. CLINDAMYCIN AND BENZOYL PEROXIDE GEL, 1%/5% [Suspect]
     Active Substance: BENZOYL PEROXIDE\CLINDAMYCIN PHOSPHATE
     Indication: RASH
     Dosage: UNK, HS (1 DOSE EVERY EVENING BEFORE BEDTIME)
     Route: 061
     Dates: start: 20210228, end: 202103
  2. CLINDAMYCIN AND BENZOYL PEROXIDE GEL, 1%/5% [Suspect]
     Active Substance: BENZOYL PEROXIDE\CLINDAMYCIN PHOSPHATE
     Dosage: UNK, HS (1 EVERY EVENING BEFORE BEDTIME)
     Route: 061
     Dates: start: 2021, end: 2021
  3. OMEPRAZOLE. [Concomitant]
     Active Substance: OMEPRAZOLE
     Indication: GASTROOESOPHAGEAL REFLUX DISEASE
     Dosage: UNK
     Route: 048

REACTIONS (5)
  - Product reconstitution quality issue [Unknown]
  - Wrong technique in product usage process [Unknown]
  - Application site discolouration [Recovered/Resolved]
  - Drug ineffective [Unknown]
  - Dry skin [Recovered/Resolved]

NARRATIVE: CASE EVENT DATE: 2021
